FAERS Safety Report 7134254-8 (Version None)
Quarter: 2010Q4

REPORT INFORMATION
  Report Type: 
  Country: None (occurrence: None)
  Receive Date: 20101203
  Receipt Date: 20101124
  Transmission Date: 20110411
  Serious: Yes (Hospitalization)
  Sender: FDA-Public Use
  Company Number: US-JNJFOC-20101108607

PATIENT
  Sex: Male
  Weight: 59.9 kg

DRUGS (6)
  1. REMICADE [Suspect]
     Indication: CROHN'S DISEASE
     Route: 042
  2. ANTIBIOTICS [Suspect]
     Indication: INFLAMMATORY BOWEL DISEASE
  3. PREDNISONE [Suspect]
     Indication: PRODUCT USED FOR UNKNOWN INDICATION
  4. TACROLIMUS [Suspect]
     Indication: PRODUCT USED FOR UNKNOWN INDICATION
  5. CIMZIA [Concomitant]
  6. RANITIDINE [Concomitant]

REACTIONS (1)
  - ABDOMINAL PAIN [None]
